FAERS Safety Report 8095171-2 (Version None)
Quarter: 2012Q1

REPORT INFORMATION
  Report Type: 
  Country: None (occurrence: None)
  Receive Date: 20120129
  Receipt Date: 20111230
  Transmission Date: 20120608
  Serious: No
  Sender: FDA-Public Use
  Company Number: US-ABBOTT-12P-163-0888642-00

PATIENT
  Age: 45 Year
  Sex: Male

DRUGS (4)
  1. UNKNOWN MEDICATIONS [Concomitant]
     Indication: PRODUCT USED FOR UNKNOWN INDICATION
  2. HUMIRA [Suspect]
     Indication: CROHN'S DISEASE
     Dosage: 160MG LOADING DOSE
     Dates: start: 20111213, end: 20111213
  3. HUMIRA [Suspect]
     Dosage: 80MG LOADING DOSE
     Dates: start: 20111227, end: 20111227
  4. HUMIRA [Suspect]

REACTIONS (3)
  - ABDOMINAL DISTENSION [None]
  - ERUCTATION [None]
  - DYSPEPSIA [None]
